FAERS Safety Report 4389540-1 (Version None)
Quarter: 2004Q3

REPORT INFORMATION
  Report Type: 
  Country: None (occurrence: None)
  Receive Date: 20040702
  Receipt Date: 20040621
  Transmission Date: 20050211
  Serious: Yes (Life-Threatening, Hospitalization)
  Sender: FDA-Public Use
  Company Number: IT-AMGEN-UK080795

PATIENT
  Sex: Male

DRUGS (7)
  1. DARBEPOETIN ALFA [Suspect]
     Indication: ANAEMIA OF MALIGNANT DISEASE
     Route: 058
     Dates: start: 20040601, end: 20040621
  2. GRANULOKINE [Suspect]
     Route: 065
     Dates: start: 20040609
  3. SPORANOX [Concomitant]
     Route: 065
  4. INSULIN [Concomitant]
  5. ENALAPRIL MALEATE [Concomitant]
  6. OMEPRAZOLE [Concomitant]
  7. CIPROFLOXACIN [Concomitant]

REACTIONS (2)
  - COAGULOPATHY [None]
  - PULMONARY EMBOLISM [None]
